FAERS Safety Report 24615342 (Version 4)
Quarter: 2025Q1

REPORT INFORMATION
  Report Type: Spontaneous
  Country: US (occurrence: US)
  Receive Date: 20241113
  Receipt Date: 20250317
  Transmission Date: 20250408
  Serious: No
  Sender: SANOFI AVENTIS
  Company Number: US-SA-2024SA328967

PATIENT
  Age: 13 Year
  Sex: Female

DRUGS (1)
  1. DUPIXENT [Suspect]
     Active Substance: DUPILUMAB
     Indication: Dermatitis atopic
     Dosage: 200 MG, QOW
     Route: 058
     Dates: start: 202310, end: 202411

REACTIONS (8)
  - Skin swelling [Not Recovered/Not Resolved]
  - Pain [Unknown]
  - Injection site irritation [Recovered/Resolved]
  - Oral disorder [Recovered/Resolved]
  - Visual impairment [Recovered/Resolved]
  - Ocular hyperaemia [Unknown]
  - Rash [Not Recovered/Not Resolved]
  - Conjunctivitis [Recovered/Resolved]

NARRATIVE: CASE EVENT DATE: 20231001
